FAERS Safety Report 9772515 (Version 1)
Quarter: 2013Q4

REPORT INFORMATION
  Report Type: Spontaneous
  Country: US (occurrence: None)
  Receive Date: 20131218
  Receipt Date: 20131218
  Transmission Date: 20140711
  Serious: Yes (Other)
  Sender: FDA-Public Use
  Company Number: 2013CT000093

PATIENT
  Age: 27 Year
  Sex: Female

DRUGS (6)
  1. KORLYM [Suspect]
     Indication: PITUITARY-DEPENDENT CUSHING^S SYNDROME
     Dates: start: 20131018, end: 20131028
  2. BP MEDS COMBO [Concomitant]
  3. DESMOPRESSIN [Concomitant]
  4. DEXAMETHASONE [Concomitant]
  5. BENADRYL [Concomitant]
  6. METFORMIN [Concomitant]

REACTIONS (3)
  - Rash [None]
  - Periorbital oedema [None]
  - Blood potassium decreased [None]
